FAERS Safety Report 8962803 (Version 1)
Quarter: 2012Q4

REPORT INFORMATION
  Report Type: 
  Country: US (occurrence: US)
  Receive Date: 20121213
  Receipt Date: 20121213
  Transmission Date: 20130627
  Serious: Yes (Death)
  Sender: FDA-Public Use
  Company Number: US-PFIZER INC-2012311687

PATIENT
  Age: 51 Year
  Sex: Male

DRUGS (1)
  1. XALKORI [Suspect]
     Indication: MALIGNANT NEOPLASM OF TRACHEA
     Dosage: 250 mg, UNK
     Dates: start: 20120829, end: 20121031

REACTIONS (2)
  - Disease progression [Fatal]
  - Tracheal cancer [Fatal]
